FAERS Safety Report 9745465 (Version 1)
Quarter: 2013Q4

REPORT INFORMATION
  Report Type: Spontaneous
  Country: US (occurrence: None)
  Receive Date: 20131204
  Receipt Date: 20131204
  Transmission Date: 20140711
  Serious: Yes (Hospitalization)
  Sender: FDA-Public Use
  Company Number: ALK-2013-002228

PATIENT
  Age: 55 Year
  Sex: Male
  Weight: 88.4 kg

DRUGS (8)
  1. VIVITROL [Suspect]
     Route: 030
     Dates: start: 20131111
  2. SUBOXONE (BUPRENORPHINE HYDROCHLORIDE, NALOXONE HYDROCHLORIDE) [Concomitant]
  3. TRAMADOL [Concomitant]
  4. PROVIGIL (MODAFINIL) [Concomitant]
  5. CLONIDINE [Concomitant]
  6. XANAX (ALPRAZOLAM) [Concomitant]
  7. OMEPRAZOLE [Concomitant]
  8. ZOFRAN (ONDANSETRON) [Concomitant]

REACTIONS (14)
  - Pain [None]
  - Vomiting [None]
  - Frequent bowel movements [None]
  - Haematemesis [None]
  - Skin burning sensation [None]
  - Drug administration error [None]
  - Injection site reaction [None]
  - Injection site mass [None]
  - Injection site swelling [None]
  - Injection site pain [None]
  - Nausea [None]
  - Malaise [None]
  - Weight decreased [None]
  - Dehydration [None]
